FAERS Safety Report 6047075-4 (Version None)
Quarter: 2009Q1

REPORT INFORMATION
  Report Type: 
  Country: None (occurrence: None)
  Receive Date: 20090122
  Receipt Date: 20090115
  Transmission Date: 20090719
  Serious: Yes (Hospitalization)
  Sender: FDA-Public Use
  Company Number: FR-ASTRAZENECA-2009CG00191

PATIENT
  Age: 42 Year
  Sex: Male

DRUGS (5)
  1. DIPRIVAN [Suspect]
     Indication: INDUCTION OF ANAESTHESIA
     Route: 042
     Dates: start: 20070106, end: 20070106
  2. CELOCURIN [Suspect]
     Indication: INDUCTION OF ANAESTHESIA
     Dates: start: 20070106, end: 20070106
  3. SUFENTA PRESERVATIVE FREE [Suspect]
     Indication: INDUCTION OF ANAESTHESIA
     Dates: start: 20070106, end: 20070106
  4. TRACRIUM [Suspect]
     Indication: INDUCTION OF ANAESTHESIA
     Dates: start: 20070106, end: 20070106
  5. MIDAZOLAM [Suspect]
     Indication: INDUCTION OF ANAESTHESIA
     Dates: start: 20070106, end: 20070106

REACTIONS (5)
  - ANAPHYLACTIC SHOCK [None]
  - BRONCHOSPASM [None]
  - HYPERHIDROSIS [None]
  - HYPOTENSION [None]
  - TACHYCARDIA [None]
